FAERS Safety Report 6911233-4 (Version None)
Quarter: 2010Q3

REPORT INFORMATION
  Report Type: 
  Country: None (occurrence: None)
  Receive Date: 20100806
  Receipt Date: 20100726
  Transmission Date: 20110219
  Serious: Yes (Other)
  Sender: FDA-Public Use
  Company Number: PHHY2010US44221

PATIENT
  Sex: Female

DRUGS (9)
  1. FEMARA [Suspect]
     Dosage: 2.5 MG, QD
  2. ASPIRIN [Concomitant]
  3. PLAVIX [Concomitant]
  4. SIMVASTATIN [Concomitant]
  5. ATENOLOL [Concomitant]
  6. HYDROCHLOROTHIAZIDE [Concomitant]
  7. NITROSTAT [Concomitant]
  8. LISINOPRIL [Concomitant]
  9. GABAPENTIN [Concomitant]

REACTIONS (6)
  - BREAST CANCER [None]
  - DYSAESTHESIA [None]
  - MUSCULOSKELETAL PAIN [None]
  - NEOPLASM MALIGNANT [None]
  - PAIN [None]
  - SENSORY LOSS [None]
